FAERS Safety Report 23683172 (Version 1)
Quarter: 2024Q1

REPORT INFORMATION
  Report Type: Report from Study
  Country: US (occurrence: US)
  Receive Date: 20240328
  Receipt Date: 20240328
  Transmission Date: 20240410
  Serious: Yes (Hospitalization)
  Sender: FDA-Public Use
  Company Number: US-ABBVIE-5687727

PATIENT
  Age: 77 Year
  Sex: Female

DRUGS (3)
  1. SKYRIZI [Suspect]
     Active Substance: RISANKIZUMAB-RZAA
     Indication: Crohn^s disease
     Dosage: 600MG / 10ML?FORM STRENGTH: 600 MG?WEEK 0
     Route: 042
     Dates: start: 20231206, end: 20231206
  2. SKYRIZI [Suspect]
     Active Substance: RISANKIZUMAB-RZAA
     Indication: Crohn^s disease
     Dosage: 600MG / 10ML?FORM STRENGTH: 600 MG?WEEK 8
     Route: 042
     Dates: start: 20240221
  3. SKYRIZI [Suspect]
     Active Substance: RISANKIZUMAB-RZAA
     Indication: Crohn^s disease
     Dosage: 600MG / 10ML?FORM STRENGTH: 600 MG?WEEK 4
     Route: 042
     Dates: start: 202401, end: 202401

REACTIONS (4)
  - Nausea [Recovering/Resolving]
  - Diarrhoea [Recovering/Resolving]
  - Vomiting [Recovering/Resolving]
  - Dehydration [Recovering/Resolving]

NARRATIVE: CASE EVENT DATE: 20240317
